FAERS Safety Report 12343885 (Version 1)
Quarter: 2016Q2

REPORT INFORMATION
  Report Type: Spontaneous
  Country: US (occurrence: US)
  Receive Date: 20160507
  Receipt Date: 20160507
  Transmission Date: 20160815
  Serious: No
  Sender: FDA-Public Use
  Company Number: US-ASTRAZENECA-2016SE35414

PATIENT
  Age: 21876 Day
  Sex: Female
  Weight: 100.2 kg

DRUGS (7)
  1. METFORMIN [Concomitant]
     Active Substance: METFORMIN HYDROCHLORIDE
     Indication: DIABETES MELLITUS
     Route: 048
     Dates: start: 2004
  2. LOSARTAN. [Concomitant]
     Active Substance: LOSARTAN
     Indication: BLOOD PRESSURE ABNORMAL
     Route: 048
     Dates: start: 2013
  3. LOW DOSE ASPIRIN [Concomitant]
     Active Substance: ASPIRIN
     Indication: ILL-DEFINED DISORDER
     Route: 048
     Dates: start: 2006
  4. TRAMADOL. [Concomitant]
     Active Substance: TRAMADOL
     Indication: HEADACHE
     Route: 048
  5. GLIBURIDE [Concomitant]
     Indication: DIABETES MELLITUS
     Route: 048
  6. BYDUREON [Suspect]
     Active Substance: EXENATIDE
     Indication: DIABETES MELLITUS
     Route: 058
     Dates: start: 20160319
  7. CYCLOBENZAPRINE [Concomitant]
     Active Substance: CYCLOBENZAPRINE
     Indication: MUSCLE RELAXANT THERAPY
     Route: 048
     Dates: start: 2013

REACTIONS (3)
  - Headache [Recovered/Resolved]
  - Injection site mass [Not Recovered/Not Resolved]
  - Weight decreased [Not Recovered/Not Resolved]

NARRATIVE: CASE EVENT DATE: 20160319
